FAERS Safety Report 9190730 (Version 1)
Quarter: 2013Q1

REPORT INFORMATION
  Report Type: Spontaneous
  Country: BR (occurrence: BR)
  Receive Date: 20130326
  Receipt Date: 20130326
  Transmission Date: 20140127
  Serious: Yes (Other)
  Sender: FDA-Public Use
  Company Number: BR-PFIZER INC-2013091664

PATIENT
  Age: 61 Year
  Sex: Female
  Weight: 77 kg

DRUGS (3)
  1. XALATAN [Suspect]
     Dosage: UNK
     Route: 047
  2. COSOPT [Concomitant]
  3. BRIMONIDINE TARTRATE [Concomitant]

REACTIONS (2)
  - Visual acuity reduced [Unknown]
  - Intraocular pressure increased [Unknown]
